FAERS Safety Report 7227018-8 (Version None)
Quarter: 2011Q1

REPORT INFORMATION
  Report Type: 
  Country: None (occurrence: None)
  Receive Date: 20110114
  Receipt Date: 20100111
  Transmission Date: 20110831
  Serious: Yes (Hospitalization)
  Sender: FDA-Public Use
  Company Number: PHHY2010FR01262

PATIENT

DRUGS (6)
  1. LYRICA [Concomitant]
  2. LARGACTIL [Concomitant]
  3. ESOMEPRAZOLE [Concomitant]
  4. SERETIDE [Concomitant]
  5. SOLUPRED [Concomitant]
  6. GLEEVEC [Suspect]
     Indication: CHRONIC MYELOID LEUKAEMIA
     Dosage: 400 MG/DAY
     Route: 048
     Dates: start: 20020601

REACTIONS (2)
  - TONGUE NEOPLASM MALIGNANT STAGE UNSPECIFIED [None]
  - RESPIRATORY FAILURE [None]
